FAERS Safety Report 4383324-6 (Version None)
Quarter: 2004Q2

REPORT INFORMATION
  Report Type: 
  Country: None (occurrence: None)
  Receive Date: 20040622
  Receipt Date: 20040622
  Transmission Date: 20050107
  Serious: No
  Sender: FDA-Public Use
  Company Number: None

PATIENT
  Age: 58 Year
  Sex: Female
  Weight: 63.5036 kg

DRUGS (1)
  1. NITROFURANTOIN [Suspect]
     Indication: CYSTITIS
     Dosage: 1 PILL ORAL
     Route: 048
     Dates: start: 20040601, end: 20040605

REACTIONS (4)
  - ASTHENIA [None]
  - CHILLS [None]
  - HEADACHE [None]
  - MYALGIA [None]
